FAERS Safety Report 8174818-6 (Version None)
Quarter: 2012Q1

REPORT INFORMATION
  Report Type: 
  Country: None (occurrence: None)
  Receive Date: 20120229
  Receipt Date: 20120221
  Transmission Date: 20120608
  Serious: Yes (Other)
  Sender: FDA-Public Use
  Company Number: US-ABBOTT-12P-163-0906903-00

PATIENT
  Sex: Female
  Weight: 68.1 kg

DRUGS (2)
  1. HUMIRA [Suspect]
     Indication: RHEUMATOID ARTHRITIS
     Route: 058
     Dates: start: 20070101, end: 20110201
  2. HUMIRA [Suspect]
     Route: 058
     Dates: start: 20111101

REACTIONS (3)
  - GAIT DISTURBANCE [None]
  - UNEVALUABLE EVENT [None]
  - OSTEOMYELITIS [None]
